FAERS Safety Report 15849896 (Version 2)
Quarter: 2019Q2

REPORT INFORMATION
  Report Type: Spontaneous
  Country: US (occurrence: US)
  Receive Date: 20190121
  Receipt Date: 20190423
  Transmission Date: 20190711
  Serious: Yes (Hospitalization)
  Sender: FDA-Public Use
  Company Number: US-ACTELION-A-NJ2019-184966

PATIENT
  Age: 47 Year
  Sex: Male

DRUGS (2)
  1. SILDENAFIL. [Concomitant]
     Active Substance: SILDENAFIL
     Indication: PULMONARY ARTERIAL HYPERTENSION
     Dosage: 20 MG, TID
     Dates: start: 20140403
  2. TRACLEER [Suspect]
     Active Substance: BOSENTAN
     Indication: PULMONARY HYPERTENSION
     Dosage: 125 MG, BID
     Route: 048
     Dates: start: 20101012

REACTIONS (8)
  - Cerebrovascular disorder [Recovered/Resolved]
  - Migraine [Not Recovered/Not Resolved]
  - Hypoaesthesia [Recovering/Resolving]
  - Mobility decreased [Recovering/Resolving]
  - Vertigo [Recovered/Resolved]
  - Hemiplegia [Recovering/Resolving]
  - Fatigue [Recovered/Resolved]
  - Tremor [Recovered/Resolved]

NARRATIVE: CASE EVENT DATE: 20190107
